FAERS Safety Report 20026155 (Version 1)
Quarter: 2021Q4

REPORT INFORMATION
  Report Type: Spontaneous
  Country: US (occurrence: US)
  Receive Date: 20211102
  Receipt Date: 20211102
  Transmission Date: 20220303
  Serious: No
  Sender: FDA-Public Use
  Company Number: US-GALDERMA-US2021015410

PATIENT

DRUGS (4)
  1. METROGEL [Suspect]
     Active Substance: METRONIDAZOLE
     Indication: Rosacea
     Dosage: 1 DOSAGE FORM, USED DAILY
     Route: 061
  2. METROCREAM [Suspect]
     Active Substance: METRONIDAZOLE
     Indication: Rosacea
     Dosage: 1 DOSAGE FORM, USED DAILY
     Route: 061
     Dates: end: 2013
  3. THYROXINE [Concomitant]
     Active Substance: LEVOTHYROXINE
     Indication: Product used for unknown indication
     Dosage: UNK
     Route: 065
  4. FINACEA [Concomitant]
     Active Substance: AZELAIC ACID
     Indication: Product used for unknown indication
     Dosage: UNK
     Route: 065

REACTIONS (2)
  - Dry skin [Unknown]
  - Drug ineffective [Unknown]
